FAERS Safety Report 25363068 (Version 2)
Quarter: 2025Q3

REPORT INFORMATION
  Report Type: Spontaneous
  Country: GB (occurrence: GB)
  Receive Date: 20250527
  Receipt Date: 20250707
  Transmission Date: 20251020
  Serious: Yes (Hospitalization, Other)
  Sender: MYLAN
  Company Number: GB-MYLANLABS-2025M1043704

PATIENT
  Sex: Male

DRUGS (3)
  1. CLOZARIL [Suspect]
     Active Substance: CLOZAPINE
     Indication: Schizophrenia
  2. CLOZARIL [Suspect]
     Active Substance: CLOZAPINE
     Dosage: BID (50 MILLIGRAM MORNING, 50 MILLIGRAM NIGHT)
  3. CLOZARIL [Suspect]
     Active Substance: CLOZAPINE
     Dosage: BID (50 MILLIGRAM MORNING, 100 MILLLIGRAM NIGHT)

REACTIONS (7)
  - Hallucination [Unknown]
  - Confusional state [Unknown]
  - Treatment noncompliance [Unknown]
  - Urinary retention [Unknown]
  - Urinary tract infection [Unknown]
  - Disinhibition [Unknown]
  - Constipation [Unknown]
